FAERS Safety Report 14121925 (Version 1)
Quarter: 2017Q4

REPORT INFORMATION
  Report Type: Spontaneous
  Country: GB (occurrence: GB)
  Receive Date: 20171024
  Receipt Date: 20171024
  Transmission Date: 20180321
  Serious: Yes (Death, Life-Threatening, Other)
  Sender: FDA-Public Use
  Company Number: GB-MYLANLABS-2017M1065998

PATIENT
  Age: 84 Year
  Sex: Male
  Weight: 66 kg

DRUGS (11)
  1. BUPRENORPHINE. [Concomitant]
     Active Substance: BUPRENORPHINE
  2. CARBOCISTEINE [Concomitant]
     Active Substance: CARBOCYSTEINE
  3. TIOTROPIUM [Concomitant]
     Active Substance: TIOTROPIUM
  4. AMOXICILLIN. [Concomitant]
     Active Substance: AMOXICILLIN
  5. CLARITHROMYCIN. [Concomitant]
     Active Substance: CLARITHROMYCIN
  6. CO-BENELDOPA [Concomitant]
     Active Substance: BENSERAZIDE HYDROCHLORIDE\LEVODOPA
  7. ASPIRIN                            /00002701/ [Concomitant]
     Active Substance: ASPIRIN
  8. SALMETEROL/FLUTICASONE [Concomitant]
     Active Substance: FLUTICASONE PROPIONATE\SALMETEROL XINAFOATE
  9. LEVOFLOXACIN. [Suspect]
     Active Substance: LEVOFLOXACIN
     Indication: PNEUMONIA
     Route: 048
     Dates: start: 20170928, end: 20170929
  10. BENZYLPENICILLIN [Concomitant]
     Active Substance: PENICILLIN G
  11. LANSOPRAZOLE. [Concomitant]
     Active Substance: LANSOPRAZOLE

REACTIONS (1)
  - Epilepsy [Fatal]

NARRATIVE: CASE EVENT DATE: 20170929
